FAERS Safety Report 22006131 (Version 2)
Quarter: 2023Q2

REPORT INFORMATION
  Report Type: Spontaneous
  Country: GR (occurrence: GR)
  Receive Date: 20230217
  Receipt Date: 20230521
  Transmission Date: 20230722
  Serious: Yes (Other)
  Sender: FDA-Public Use
  Company Number: GR-JNJFOC-20230231778

PATIENT
  Age: 22 Year
  Sex: Male

DRUGS (4)
  1. TREMFYA [Suspect]
     Active Substance: GUSELKUMAB
     Indication: Psoriasis
     Route: 058
     Dates: start: 20221108
  2. ENBREL [Concomitant]
     Active Substance: ETANERCEPT
  3. HUMIRA [Concomitant]
     Active Substance: ADALIMUMAB
  4. STELARA [Concomitant]
     Active Substance: USTEKINUMAB

REACTIONS (4)
  - Tonsillitis [Unknown]
  - Guttate psoriasis [Unknown]
  - Fatigue [Unknown]
  - Arthralgia [Unknown]
